FAERS Safety Report 25393944 (Version 2)
Quarter: 2025Q3

REPORT INFORMATION
  Report Type: Spontaneous
  Country: US (occurrence: US)
  Receive Date: 20250604
  Receipt Date: 20250720
  Transmission Date: 20251021
  Serious: No
  Sender: GLAXOSMITHKLINE
  Company Number: US-GSK-US2025AMR067403

PATIENT
  Sex: Female

DRUGS (1)
  1. ZEJULA [Suspect]
     Active Substance: NIRAPARIB
     Indication: Ovarian cancer
     Dosage: 200 MG, QD
     Dates: start: 202505

REACTIONS (9)
  - Muscle strain [Recovering/Resolving]
  - Discomfort [Recovering/Resolving]
  - Constipation [Not Recovered/Not Resolved]
  - Abdominal discomfort [Unknown]
  - Gastrointestinal pain [Unknown]
  - Loss of personal independence in daily activities [Unknown]
  - Palmar-plantar erythrodysaesthesia syndrome [Not Recovered/Not Resolved]
  - Skin disorder [Not Recovered/Not Resolved]
  - Fatigue [Recovering/Resolving]
